FAERS Safety Report 6995216-4 (Version None)
Quarter: 2010Q3

REPORT INFORMATION
  Report Type: 
  Country: None (occurrence: None)
  Receive Date: 20100915
  Receipt Date: 20100903
  Transmission Date: 20110219
  Serious: Yes (Hospitalization)
  Sender: FDA-Public Use
  Company Number: UTC-001411

PATIENT
  Age: 40 Year
  Sex: Female
  Weight: 62.2 kg

DRUGS (3)
  1. REMODULIN [Suspect]
     Indication: PULMONARY ARTERIAL HYPERTENSION
     Dosage: 165.6 UG/KG (0.115 UG/KG, 1 IN 1 MIN) INTRAVENOUS
     Route: 042
     Dates: start: 20041223
  2. ORAL CONTRACEPTIVES (ORAL CONTRACEPTIVE NOS) [Concomitant]
  3. XANAX [Concomitant]

REACTIONS (2)
  - CONVULSION [None]
  - SUBDURAL HAEMATOMA [None]
